FAERS Safety Report 13739285 (Version 1)
Quarter: 2017Q3

REPORT INFORMATION
  Report Type: Spontaneous
  Country: US (occurrence: GR)
  Receive Date: 20170710
  Receipt Date: 20170710
  Transmission Date: 20171127
  Serious: Yes (Other)
  Sender: FDA-Public Use
  Company Number: US-SA-2017SA123489

PATIENT
  Age: 62 Year
  Sex: Male

DRUGS (6)
  1. SERTRALINE [Concomitant]
     Active Substance: SERTRALINE HYDROCHLORIDE
     Indication: DEPRESSION
     Route: 065
  2. TAXOTERE [Suspect]
     Active Substance: DOCETAXEL
     Indication: BLADDER CANCER
     Route: 042
     Dates: start: 20170508, end: 20170508
  3. ZOLOFT [Concomitant]
     Active Substance: SERTRALINE HYDROCHLORIDE
     Route: 065
     Dates: start: 201606
  4. TAXOTERE [Suspect]
     Active Substance: DOCETAXEL
     Indication: BLADDER CANCER
     Route: 042
     Dates: start: 20170220, end: 20170220
  5. LEVOMEPROMAZINE [Concomitant]
     Active Substance: LEVOMEPROMAZINE
     Indication: HICCUPS
     Route: 065
  6. ONDANSETRON [Concomitant]
     Active Substance: ONDANSETRON
     Route: 065
     Dates: start: 20170314

REACTIONS (1)
  - Fistula of small intestine [Unknown]

NARRATIVE: CASE EVENT DATE: 20170527
